FAERS Safety Report 9929288 (Version 2)
Quarter: 2014Q1

REPORT INFORMATION
  Report Type: Spontaneous
  Country: US (occurrence: US)
  Receive Date: 20140227
  Receipt Date: 20140314
  Transmission Date: 20141002
  Serious: Yes (Other)
  Sender: FDA-Public Use
  Company Number: US-GLAXOSMITHKLINE-A1061527A

PATIENT
  Age: 32 Year
  Sex: Female

DRUGS (2)
  1. BENLYSTA [Suspect]
     Indication: SYSTEMIC LUPUS ERYTHEMATOSUS
     Route: 042
  2. NO CONCURRENT MEDICATION [Concomitant]

REACTIONS (8)
  - Spinal cord injury [Not Recovered/Not Resolved]
  - Myelitis transverse [Recovering/Resolving]
  - Back pain [Recovering/Resolving]
  - Pain in extremity [Recovering/Resolving]
  - Hypoaesthesia [Recovering/Resolving]
  - Tremor [Recovering/Resolving]
  - Muscular weakness [Recovering/Resolving]
  - Musculoskeletal disorder [Not Recovered/Not Resolved]
